FAERS Safety Report 13049554 (Version 2)
Quarter: 2018Q1

REPORT INFORMATION
  Report Type: Report from Study
  Country: US (occurrence: US)
  Receive Date: 20161221
  Receipt Date: 20180108
  Transmission Date: 20180508
  Serious: Yes (Hospitalization, Other)
  Sender: FDA-Public Use
  Company Number: US-GILEAD-2016-0247513

PATIENT
  Age: 53 Year
  Sex: Female

DRUGS (2)
  1. NIFEDIPINE. [Concomitant]
     Active Substance: NIFEDIPINE
  2. AMBRISENTAN [Suspect]
     Active Substance: AMBRISENTAN
     Indication: PRODUCT USED FOR UNKNOWN INDICATION
     Dosage: 5 MG, QD
     Route: 065
     Dates: start: 20091021

REACTIONS (8)
  - Eye disorder [Unknown]
  - Cardiovascular disorder [Unknown]
  - Brain operation [Unknown]
  - Seizure [Unknown]
  - Nerve compression [Unknown]
  - Pain in extremity [Unknown]
  - Thyroid disorder [Unknown]
  - Pain [Unknown]
